FAERS Safety Report 6343399-1 (Version None)
Quarter: 2009Q3

REPORT INFORMATION
  Report Type: 
  Country: None (occurrence: None)
  Receive Date: 20090908
  Receipt Date: 20090902
  Transmission Date: 20100115
  Serious: Yes (Hospitalization)
  Sender: FDA-Public Use
  Company Number: PHEH2009US10266

PATIENT
  Sex: Female

DRUGS (1)
  1. RECLAST [Suspect]
     Dosage: 5 MG, ONCE/SINGLE
     Dates: start: 20090828, end: 20090828

REACTIONS (3)
  - ANAEMIA [None]
  - DEHYDRATION [None]
  - HEART RATE INCREASED [None]
